FAERS Safety Report 9881741 (Version 2)
Quarter: 2014Q2

REPORT INFORMATION
  Report Type: Spontaneous
  Country: US (occurrence: US)
  Receive Date: 20140207
  Receipt Date: 20140411
  Transmission Date: 20141212
  Serious: No
  Sender: FDA-Public Use
  Company Number: US-009507513-1401USA013395

PATIENT
  Age: 34 Year
  Sex: Female
  Weight: 58.3 kg

DRUGS (1)
  1. INTRONA [Suspect]
     Indication: MALIGNANT MELANOMA
     Dosage: UNK
     Route: 042
     Dates: start: 20140123, end: 20140124

REACTIONS (3)
  - Neutropenia [Recovered/Resolved]
  - Incorrect route of drug administration [Unknown]
  - Drug administration error [Unknown]
